FAERS Safety Report 9345867 (Version 2)
Quarter: 2013Q3

REPORT INFORMATION
  Report Type: Spontaneous
  Country: IT (occurrence: IT)
  Receive Date: 20130613
  Receipt Date: 20130726
  Transmission Date: 20140515
  Serious: Yes (Hospitalization, Other)
  Sender: FDA-Public Use
  Company Number: IT-PFIZER INC-2013176140

PATIENT
  Age: 80 Year
  Sex: Male

DRUGS (9)
  1. FARMORUBICINA [Suspect]
     Indication: NON-HODGKIN^S LYMPHOMA
     Dosage: 90 MG, CYCLIC
     Route: 042
     Dates: start: 20111001, end: 20120125
  2. MABTHERA [Suspect]
     Indication: NON-HODGKIN^S LYMPHOMA
     Dosage: 375 MG, CYCLIC
     Route: 042
     Dates: start: 20110930, end: 20120424
  3. VINCRISTINA TEVA ITALIA [Suspect]
     Indication: NON-HODGKIN^S LYMPHOMA
     Dosage: 1.4 MG, CYCLIC
     Route: 042
     Dates: start: 20111001, end: 20120125
  4. ENDOXAN-BAXTER [Suspect]
     Indication: NON-HODGKIN^S LYMPHOMA
     Dosage: 750 MG, CYCLIC
     Route: 042
     Dates: start: 20111001, end: 20120125
  5. PREDNISONE [Concomitant]
     Dosage: UNK
     Dates: start: 20120126, end: 20120129
  6. RANITIDINE [Concomitant]
     Dosage: UNK
     Dates: start: 20120124, end: 20120124
  7. TRIMETON [Concomitant]
     Dosage: UNK
     Dates: start: 20120124, end: 20120124
  8. URBASON [Concomitant]
     Dosage: UNK
     Dates: start: 20120124, end: 20120125
  9. TACHIPIRINA [Concomitant]
     Dosage: UNK
     Dates: start: 20120124, end: 20120124

REACTIONS (5)
  - Streptococcal sepsis [Recovered/Resolved]
  - Pancytopenia [Recovered/Resolved]
  - Hyperpyrexia [Recovered/Resolved]
  - Diarrhoea [Recovered/Resolved]
  - Vomiting [Recovered/Resolved]
